FAERS Safety Report 7006466-5 (Version None)
Quarter: 2010Q3

REPORT INFORMATION
  Report Type: 
  Country: None (occurrence: None)
  Receive Date: 20100921
  Receipt Date: 20100909
  Transmission Date: 20110219
  Serious: Yes (Other)
  Sender: FDA-Public Use
  Company Number: FR-GILEAD-E2B_00000844

PATIENT
  Sex: Male

DRUGS (4)
  1. AMBRISENTAN [Suspect]
     Indication: PULMONARY ARTERIAL HYPERTENSION
     Route: 048
  2. AMBRISENTAN [Suspect]
     Route: 048
  3. REVATIO [Concomitant]
  4. CORTANCYL [Concomitant]

REACTIONS (1)
  - CARDIAC FAILURE [None]
